FAERS Safety Report 10249504 (Version 1)
Quarter: 2014Q2

REPORT INFORMATION
  Report Type: Other
  Country: BE (occurrence: BE)
  Receive Date: 20140620
  Receipt Date: 20140620
  Transmission Date: 20141212
  Serious: Yes (Death)
  Sender: FDA-Public Use
  Company Number: BE-BRISTOL-MYERS SQUIBB COMPANY-21071238

PATIENT
  Age: 73 Year
  Sex: Male

DRUGS (1)
  1. AZTREONAM [Suspect]
     Indication: ESCHERICHIA SEPSIS

REACTIONS (1)
  - Drug ineffective [Fatal]
